FAERS Safety Report 5463337-3 (Version None)
Quarter: 2007Q3

REPORT INFORMATION
  Report Type: 
  Country: None (occurrence: None)
  Receive Date: 20070920
  Receipt Date: 20070911
  Transmission Date: 20080115
  Serious: Yes (Death, Other)
  Sender: FDA-Public Use
  Company Number: US-PURDUE-USA_2002_0002069

PATIENT
  Age: 29 Year
  Sex: Female
  Weight: 104 kg

DRUGS (2)
  1. OXYCONTIN TABLETS 40 MG [Suspect]
     Indication: PAIN
     Dosage: 40 MG, Q12H
     Route: 048
  2. QUETIAPINE FUMARATE [Suspect]
     Indication: DRUG USE FOR UNKNOWN INDICATION
     Dosage: UNK MG, UNK
     Route: 048

REACTIONS (3)
  - AGGRESSION [None]
  - DRUG DEPENDENCE [None]
  - MULTIPLE DRUG OVERDOSE ACCIDENTAL [None]
